FAERS Safety Report 11058699 (Version 2)
Quarter: 2015Q2

REPORT INFORMATION
  Report Type: Report from Study
  Country: JP (occurrence: None)
  Receive Date: 20150421
  Receipt Date: 20150602
  Transmission Date: 20150821
  Serious: Yes (Other)
  Sender: FDA-Public Use
  Company Number: 2015FE01213

PATIENT
  Age: 72 Year
  Sex: Male
  Weight: 65 kg

DRUGS (10)
  1. ATENOTE (CARVEDILOL) [Concomitant]
  2. DIART (AZOSEMIDE) [Concomitant]
  3. FLIVAS (NAFTOPIDIL) [Concomitant]
  4. KREMEZIN [Concomitant]
     Active Substance: ACTIVATED CHARCOAL
  5. ARGAMATE (CALCIUM POLYSTYRENE SULFONATE) [Concomitant]
  6. OLMETEC (OLMESARTAN MEDOXOMIL) [Concomitant]
     Active Substance: OLMESARTAN MEDOXOMIL
  7. GONAX (DEGARELIX) POWDER AND SOLVENT FOR SOLUTION FOR INJECTION [Suspect]
     Active Substance: DEGARELIX
     Indication: PROSTATE CANCER
     Route: 058
     Dates: start: 20131204, end: 20131204
  8. ATELEC (CILNIDIPINE) [Concomitant]
     Active Substance: CILNIDIPINE
  9. FEBURIC (FEBUXOSTAT) [Concomitant]
     Active Substance: FEBUXOSTAT
  10. BICALUTAMIDE (BICALUTAMIDE) 80 MG [Suspect]
     Active Substance: BICALUTAMIDE
     Indication: PROSTATE CANCER
     Route: 048
     Dates: start: 20131204, end: 20140108

REACTIONS (2)
  - Condition aggravated [None]
  - Renal impairment [None]

NARRATIVE: CASE EVENT DATE: 20140108
